FAERS Safety Report 5142717-X (Version None)
Quarter: 2006Q4

REPORT INFORMATION
  Report Type: 
  Country: None (occurrence: None)
  Receive Date: 20061027
  Receipt Date: 20061009
  Transmission Date: 20070319
  Serious: Yes (Other)
  Sender: FDA-Public Use
  Company Number: 2006BH013895

PATIENT
  Age: 37 Year
  Sex: Male
  Weight: 68.5 kg

DRUGS (4)
  1. EXTRANEAL [Suspect]
     Indication: PERITONEAL DIALYSIS
     Dosage: 2000 ML; EVERY DAY; IP
     Route: 033
     Dates: start: 20060925, end: 20061006
  2. DIANEAL [Concomitant]
  3. DIOVANE [Concomitant]
  4. BELOC [Concomitant]

REACTIONS (2)
  - ABDOMINAL PAIN [None]
  - PYREXIA [None]
